FAERS Safety Report 10359648 (Version 1)
Quarter: 2014Q3

REPORT INFORMATION
  Report Type: Spontaneous
  Country: US (occurrence: US)
  Receive Date: 20140804
  Receipt Date: 20140804
  Transmission Date: 20150326
  Serious: Yes (Other)
  Sender: FDA-Public Use
  Company Number: US-JNJFOC-20140716368

PATIENT

DRUGS (1)
  1. LEVOFLOXACIN [Suspect]
     Active Substance: LEVOFLOXACIN
     Indication: PRODUCT USED FOR UNKNOWN INDICATION
     Route: 065

REACTIONS (9)
  - Hepatitis fulminant [Unknown]
  - Hepatotoxicity [Unknown]
  - Liver injury [Unknown]
  - Hepatitis toxic [Unknown]
  - Hepatitis [Unknown]
  - Cholestatic liver injury [Unknown]
  - Hepatitis acute [Unknown]
  - Hepatic atrophy [Unknown]
  - Mixed liver injury [Unknown]
